FAERS Safety Report 8246838-4 (Version None)
Quarter: 2012Q1

REPORT INFORMATION
  Report Type: 
  Country: None (occurrence: None)
  Receive Date: 20120330
  Receipt Date: 20120326
  Transmission Date: 20120608
  Serious: No
  Sender: FDA-Public Use
  Company Number: US-PFIZER INC-2012077340

PATIENT
  Sex: Female

DRUGS (5)
  1. PANTETHINE [Suspect]
     Dosage: UNK
  2. POTASSIUM PENCILLIN G [Suspect]
     Dosage: UNK
  3. LACTOBACILLUS GG AND MULTIMINERAL AND MULTIVITAMIN [Suspect]
     Dosage: UNK
  4. METFORMIN HCL [Suspect]
     Dosage: UNK
  5. CODEINE SULFATE [Suspect]
     Dosage: UNK

REACTIONS (1)
  - DRUG HYPERSENSITIVITY [None]
